FAERS Safety Report 6311914-X (Version None)
Quarter: 2009Q3

REPORT INFORMATION
  Report Type: 
  Country: None (occurrence: None)
  Receive Date: 20090817
  Receipt Date: 20090805
  Transmission Date: 20100115
  Serious: Yes (Hospitalization, Other)
  Sender: FDA-Public Use
  Company Number: US-BRISTOL-MYERS SQUIBB COMPANY-14603211

PATIENT
  Age: 9 Year
  Sex: Male

DRUGS (11)
  1. EFAVIRENZ [Suspect]
     Route: 048
  2. DIDANOSINE [Suspect]
     Route: 065
  3. SULFAMETHOXAZOLE AND TRIMETHOPRIM [Suspect]
     Route: 065
  4. RALTEGRAVIR [Suspect]
     Dosage: TABS
     Route: 048
  5. MYCOPHENOLATE MOFETIL [Suspect]
     Route: 065
  6. NELFINAVIR MESYLATE [Suspect]
     Route: 065
  7. LAMIVUDINE [Suspect]
     Route: 065
  8. ZIDOVUDINE [Suspect]
     Route: 065
  9. ABACAVIR SULFATE [Suspect]
     Route: 065
  10. SIROLIMUS [Suspect]
     Route: 065
  11. PREDNISOLONE [Suspect]
     Route: 065

REACTIONS (22)
  - ACUTE HEPATIC FAILURE [None]
  - BLOOD IMMUNOGLOBULIN E INCREASED [None]
  - CACHEXIA [None]
  - CHOLESTASIS [None]
  - DRUG TOXICITY [None]
  - GRAFT DYSFUNCTION [None]
  - HEPATIC ENCEPHALOPATHY [None]
  - HEPATIC FUNCTION ABNORMAL [None]
  - HEPATIC NECROSIS [None]
  - HEPATITIS [None]
  - HEPATOMEGALY [None]
  - HYPERLIPIDAEMIA [None]
  - HYPERTENSION [None]
  - LIVER TRANSPLANT [None]
  - LIVER TRANSPLANT REJECTION [None]
  - LYMPHADENOPATHY [None]
  - MYOPATHY [None]
  - PHARYNGITIS [None]
  - PYREXIA [None]
  - RASH [None]
  - RENAL IMPAIRMENT [None]
  - TRANSPLANT REJECTION [None]
